FAERS Safety Report 8307669-X (Version None)
Quarter: 2012Q2

REPORT INFORMATION
  Report Type: 
  Country: None (occurrence: None)
  Receive Date: 20120424
  Receipt Date: 20120424
  Transmission Date: 20120825
  Serious: Yes (Other)
  Sender: FDA-Public Use
  Company Number: None

PATIENT
  Age: 51 Year
  Sex: Male
  Weight: 106.59 kg

DRUGS (1)
  1. CHANTIX [Suspect]
     Indication: SMOKING CESSATION THERAPY
     Dosage: 0.5
     Route: 048
     Dates: start: 20120331, end: 20120422

REACTIONS (12)
  - TINNITUS [None]
  - DYSURIA [None]
  - IRRITABILITY [None]
  - AGITATION [None]
  - ASTHENIA [None]
  - DECREASED APPETITE [None]
  - SYNCOPE [None]
  - DIZZINESS [None]
  - PAIN IN EXTREMITY [None]
  - ABNORMAL BEHAVIOUR [None]
  - FALL [None]
  - FATIGUE [None]
